FAERS Safety Report 26135288 (Version 1)
Quarter: 2025Q4

REPORT INFORMATION
  Report Type: Spontaneous
  Country: US (occurrence: None)
  Receive Date: 20251208
  Receipt Date: 20251208
  Transmission Date: 20260117
  Serious: Yes (Hospitalization, Other)
  Sender: FDA-CTU
  Company Number: None

PATIENT
  Age: 58 Year
  Sex: Female
  Weight: 87.75 kg

DRUGS (1)
  1. SEMAGLUTIDE [Suspect]
     Active Substance: SEMAGLUTIDE
     Indication: Obesity
     Dosage: 0.18 ML WEEKLY SUBCUTANEOUS
     Route: 058
     Dates: start: 20250728, end: 20250929

REACTIONS (2)
  - Pancreatitis [None]
  - Therapy cessation [None]

NARRATIVE: CASE EVENT DATE: 20250924
